FAERS Safety Report 5079835-0 (Version None)
Quarter: 2006Q3

REPORT INFORMATION
  Report Type: 
  Country: None (occurrence: None)
  Receive Date: 20060720
  Receipt Date: 20050526
  Transmission Date: 20061208
  Serious: Yes (Other)
  Sender: FDA-Public Use
  Company Number: 2005081040

PATIENT
  Sex: Female
  Weight: 142.8831 kg

DRUGS (4)
  1. CELEBREX [Suspect]
     Indication: ARTHRITIS
  2. FELDENE [Suspect]
     Indication: ARTHRITIS
  3. ALL OTHER THERAPEUTIC PRODUCTS (ALL OTHER THERAPEUTIC PRODUCTS) [Concomitant]
  4. VIOXX [Concomitant]

REACTIONS (4)
  - ALOPECIA [None]
  - CARDIAC FAILURE [None]
  - HYPOKINESIA [None]
  - MYOCARDIAL INFARCTION [None]
